FAERS Safety Report 11292908 (Version 1)
Quarter: 2015Q3

REPORT INFORMATION
  Report Type: Spontaneous
  Country: DE (occurrence: DE)
  Receive Date: 20150722
  Receipt Date: 20150722
  Transmission Date: 20151125
  Serious: Yes (Other)
  Sender: FDA-Public Use
  Company Number: DE-BAXALTA-2015BLT000618

PATIENT
  Sex: Male

DRUGS (6)
  1. KIOVIG [Suspect]
     Active Substance: HUMAN IMMUNOGLOBULIN G
     Indication: MULTIFOCAL MOTOR NEUROPATHY
     Dosage: 170 G, TOTAL
     Route: 042
     Dates: start: 20150224, end: 20150227
  2. CYCLOPHOSPHAMIDE. [Concomitant]
     Active Substance: CYCLOPHOSPHAMIDE
     Indication: MULTIFOCAL MOTOR NEUROPATHY
     Dosage: 100 MG, 1X A DAY
     Dates: start: 2004, end: 20150219
  3. ZANTAC [Concomitant]
     Active Substance: RANITIDINE HYDROCHLORIDE
     Indication: MULTIFOCAL MOTOR NEUROPATHY
     Dosage: 50 MG, 1X A DAY
     Route: 048
     Dates: start: 201401, end: 20150219
  4. KIOVIG [Suspect]
     Active Substance: HUMAN IMMUNOGLOBULIN G
     Dosage: 90 G, TOTAL
     Route: 042
     Dates: start: 20150421, end: 20150422
  5. KIOVIG [Suspect]
     Active Substance: HUMAN IMMUNOGLOBULIN G
     Dosage: 90 G, TOTAL
     Route: 042
     Dates: start: 20150324, end: 20150325
  6. ZANTAC [Concomitant]
     Active Substance: RANITIDINE HYDROCHLORIDE
     Dosage: UNK, EVERY 4 WK
     Route: 042
     Dates: start: 201502, end: 201506

REACTIONS (2)
  - Infusion related reaction [Recovered/Resolved]
  - Leukopenia [Recovered/Resolved]
